FAERS Safety Report 25433836 (Version 1)
Quarter: 2025Q2

REPORT INFORMATION
  Report Type: Spontaneous
  Country: US (occurrence: US)
  Receive Date: 20250613
  Receipt Date: 20250613
  Transmission Date: 20250717
  Serious: No
  Sender: GLAND PHARMA LTD
  Company Number: US-GLANDPHARMA-US-2025GLNSPO01354

PATIENT
  Sex: Female

DRUGS (2)
  1. POSACONAZOLE [Suspect]
     Active Substance: POSACONAZOLE
     Indication: Product used for unknown indication
     Route: 065
  2. METHOTREXATE [Concomitant]
     Active Substance: METHOTREXATE
     Indication: Product used for unknown indication
     Route: 065

REACTIONS (7)
  - Illness [Unknown]
  - Mucosal inflammation [Unknown]
  - Rash [Unknown]
  - Decreased appetite [Unknown]
  - Vomiting [Unknown]
  - Cough [Unknown]
  - Lip pain [Unknown]
